FAERS Safety Report 8153678-3 (Version None)
Quarter: 2012Q1

REPORT INFORMATION
  Report Type: 
  Country: None (occurrence: None)
  Receive Date: 20120221
  Receipt Date: 20120213
  Transmission Date: 20120608
  Serious: Yes (Hospitalization, Other)
  Sender: FDA-Public Use
  Company Number: US-ABBOTT-11P-163-0722251-00

PATIENT
  Sex: Female
  Weight: 89.438 kg

DRUGS (7)
  1. HUMIRA [Suspect]
     Dates: start: 20120101
  2. MULTI-VITAMINS [Concomitant]
     Indication: PREGNANCY
  3. HUMIRA [Suspect]
     Indication: CROHN'S DISEASE
     Route: 058
     Dates: start: 20110421, end: 20110421
  4. HUMIRA [Suspect]
     Dosage: MAINTENANCE DOSE
     Route: 058
     Dates: start: 20110801, end: 20111201
  5. HUMIRA [Suspect]
     Route: 058
  6. HUMIRA [Suspect]
     Route: 058
  7. HUMIRA [Suspect]
     Dates: start: 20110421, end: 20110801

REACTIONS (12)
  - INJECTION SITE PAIN [None]
  - WOUND DEHISCENCE [None]
  - WEIGHT DECREASED [None]
  - INCORRECT DOSE ADMINISTERED BY DEVICE [None]
  - IMPAIRED HEALING [None]
  - INJECTION SITE HAEMATOMA [None]
  - WOUND INFECTION STAPHYLOCOCCAL [None]
  - DEHYDRATION [None]
  - DIARRHOEA [None]
  - DRUG EFFECT DECREASED [None]
  - CELLULITIS [None]
  - CROHN'S DISEASE [None]
